FAERS Safety Report 4817938-3 (Version None)
Quarter: 2005Q4

REPORT INFORMATION
  Report Type: 
  Country: None (occurrence: None)
  Receive Date: 20051102
  Receipt Date: 20041115
  Transmission Date: 20060501
  Serious: Yes (Death)
  Sender: FDA-Public Use
  Company Number: JP-JNJFOC-20041102410

PATIENT
  Sex: Male

DRUGS (6)
  1. CRAVIT [Suspect]
     Indication: CYSTITIS INTERSTITIAL
     Route: 048
     Dates: start: 20041022, end: 20041029
  2. VOLTAREN [Suspect]
     Route: 054
     Dates: start: 20041018, end: 20041101
  3. VOLTAREN [Suspect]
     Indication: CYSTITIS INTERSTITIAL
     Route: 054
     Dates: start: 20041018, end: 20041101
  4. BUP-4 [Suspect]
     Indication: CYSTITIS INTERSTITIAL
     Route: 048
     Dates: start: 20040804, end: 20041022
  5. LOXONIN [Concomitant]
     Indication: CYSTITIS INTERSTITIAL
     Route: 048
     Dates: start: 20041022, end: 20041028
  6. RINDERON [Concomitant]
     Indication: CYSTITIS INTERSTITIAL
     Route: 043
     Dates: start: 20041022, end: 20041027

REACTIONS (2)
  - CARDIAC ARREST [None]
  - RHABDOMYOLYSIS [None]
